FAERS Safety Report 4987748-5 (Version None)
Quarter: 2006Q2

REPORT INFORMATION
  Report Type: 
  Country: None (occurrence: None)
  Receive Date: 20060426
  Receipt Date: 20060413
  Transmission Date: 20061013
  Serious: Yes (Hospitalization)
  Sender: FDA-Public Use
  Company Number: MEDI-0004439

PATIENT
  Age: 5 Month
  Weight: 5.3 kg

DRUGS (5)
  1. SYNAGIS [Suspect]
     Indication: ANTIVIRAL PROPHYLAXIS
     Dosage: SEE IMAGE
     Dates: start: 20051025, end: 20051129
  2. SYNAGIS [Suspect]
     Indication: ANTIVIRAL PROPHYLAXIS
     Dosage: SEE IMAGE
     Dates: start: 20060301, end: 20060301
  3. SYNAGIS [Suspect]
     Indication: ANTIVIRAL PROPHYLAXIS
     Dosage: SEE IMAGE
     Dates: start: 20051025
  4. SYNAGIS [Suspect]
     Indication: ANTIVIRAL PROPHYLAXIS
     Dosage: SEE IMAGE
     Dates: start: 20051228
  5. SYNAGIS [Suspect]
     Indication: ANTIVIRAL PROPHYLAXIS
     Dosage: SEE IMAGE
     Dates: start: 20060130

REACTIONS (2)
  - BRONCHIOLITIS [None]
  - NASOPHARYNGITIS [None]
